FAERS Safety Report 10145645 (Version 1)
Quarter: 2014Q2

REPORT INFORMATION
  Report Type: Spontaneous
  Country: FI (occurrence: FI)
  Receive Date: 20140501
  Receipt Date: 20140501
  Transmission Date: 20141212
  Serious: Yes (Hospitalization)
  Sender: FDA-Public Use
  Company Number: PHHY2014FI051012

PATIENT
  Age: 38 Year
  Sex: Male
  Weight: 90 kg

DRUGS (5)
  1. SANDIMMUN [Suspect]
     Dosage: UNK UKN, UNK
     Dates: start: 200905
  2. CORDARONE [Suspect]
     Dosage: UNK UKN, UNK
     Dates: start: 200905
  3. AZAMUN [Concomitant]
     Dosage: UNK UKN, UNK
     Dates: start: 200905
  4. CARDACE [Concomitant]
     Dosage: UNK UKN, UNK
     Dates: start: 200905
  5. EMCONCOR [Concomitant]
     Dosage: UNK UKN, UNK
     Dates: start: 200905

REACTIONS (3)
  - Hyperthyroidism [Unknown]
  - Goitre [Unknown]
  - Blood thyroid stimulating hormone abnormal [Unknown]
